FAERS Safety Report 9345042 (Version 2)
Quarter: 2013Q4

REPORT INFORMATION
  Report Type: Spontaneous
  Country: US (occurrence: US)
  Receive Date: 20130612
  Receipt Date: 20131107
  Transmission Date: 20140711
  Serious: Yes (Death, Hospitalization)
  Sender: FDA-Public Use
  Company Number: US-B.I. PHARMACEUTICALS,INC./RIDGEFIELD-2013-BI-16100BP

PATIENT
  Sex: Male

DRUGS (28)
  1. PRADAXA [Suspect]
     Indication: ATRIAL FIBRILLATION
     Dosage: 1550 MG
     Dates: start: 20111122, end: 20120214
  2. PRADAXA [Suspect]
     Dosage: 75 MG
     Dates: start: 20120215, end: 20120221
  3. NEXIUM [Concomitant]
     Route: 048
  4. CRESTOR [Concomitant]
     Route: 048
  5. LEVOTHYROXINE [Concomitant]
     Route: 048
  6. AVAPRO [Concomitant]
     Route: 048
  7. ALLEGRA [Concomitant]
  8. TESTOSTERONE [Concomitant]
     Route: 030
  9. ACTOS [Concomitant]
     Route: 048
  10. SINGULAIR [Concomitant]
     Route: 048
  11. FLOMAX [Concomitant]
     Route: 048
  12. ASPIRIN [Concomitant]
     Route: 048
  13. FLONASE [Concomitant]
     Route: 045
  14. EFFEXOR XR [Concomitant]
     Route: 048
     Dates: end: 20120215
  15. JANUVIA [Concomitant]
     Route: 048
  16. LOVAZA [Concomitant]
     Route: 048
  17. VITAMIN D3 [Concomitant]
     Route: 048
  18. CO Q-10 [Concomitant]
     Route: 048
  19. OCUVITE [Concomitant]
     Route: 048
  20. VALTREX [Concomitant]
     Route: 048
  21. ELIDEL CREAM [Concomitant]
  22. VOLTAREN [Concomitant]
     Route: 048
  23. LYSINE [Concomitant]
     Route: 048
  24. SUPER B COMPLEX + C [Concomitant]
     Route: 048
  25. ULTRAVATE CREAM [Concomitant]
  26. DILTIAZEM HCL [Concomitant]
     Route: 048
  27. Z PACK [Concomitant]
  28. AUGMENTIN [Concomitant]

REACTIONS (4)
  - Pulmonary haemorrhage [Fatal]
  - Dyspnoea [Unknown]
  - Haematocrit decreased [Unknown]
  - Haemoptysis [Unknown]
